FAERS Safety Report 24542988 (Version 2)
Quarter: 2025Q3

REPORT INFORMATION
  Report Type: Spontaneous
  Country: CH (occurrence: CH)
  Receive Date: 20241024
  Receipt Date: 20250909
  Transmission Date: 20251021
  Serious: Yes (Hospitalization, Other)
  Sender: TAKEDA
  Company Number: None

PATIENT
  Age: 69 Year
  Sex: Female

DRUGS (14)
  1. BRINTELLIX [Interacting]
     Active Substance: VORTIOXETINE HYDROBROMIDE
     Indication: Depression
     Dosage: 10 MILLIGRAM, QD
  2. ENOXAPARIN SODIUM [Interacting]
     Active Substance: ENOXAPARIN SODIUM
     Indication: Pulmonary embolism
     Dates: start: 20240809, end: 20240814
  3. ENOXAPARIN SODIUM [Interacting]
     Active Substance: ENOXAPARIN SODIUM
     Dosage: 60 MILLIGRAM, Q12H
     Dates: start: 20240820
  4. AMOXICILLIN\CLAVULANATE POTASSIUM [Concomitant]
     Active Substance: AMOXICILLIN\CLAVULANATE POTASSIUM
     Indication: Tooth abscess
     Dosage: 2.2 GRAM, Q8HR
     Dates: start: 20240811, end: 20240820
  5. GLUCOBAY [Concomitant]
     Active Substance: ACARBOSE
     Indication: Product used for unknown indication
  6. CALCIUM\CHOLECALCIFEROL [Concomitant]
     Active Substance: CALCIUM\CHOLECALCIFEROL
     Indication: Product used for unknown indication
  7. Dentohexin [Concomitant]
     Indication: Product used for unknown indication
  8. CLOMETHIAZOLE [Concomitant]
     Active Substance: CLOMETHIAZOLE
     Indication: Product used for unknown indication
  9. CLORAZEPATE DIPOTASSIUM [Concomitant]
     Active Substance: CLORAZEPATE DIPOTASSIUM
     Indication: Product used for unknown indication
  10. POTASSIUM [Concomitant]
     Active Substance: POTASSIUM
     Indication: Product used for unknown indication
  11. EUTHYROX [Concomitant]
     Active Substance: LEVOTHYROXINE SODIUM
     Indication: Product used for unknown indication
  12. ASCORBIC ACID\MINERALS\VITAMINS [Concomitant]
     Active Substance: ASCORBIC ACID\MINERALS\VITAMINS
     Indication: Product used for unknown indication
  13. OCTREOTIDE ACETATE [Concomitant]
     Active Substance: OCTREOTIDE ACETATE
     Indication: Product used for unknown indication
  14. PANTOPRAZOLE SODIUM [Concomitant]
     Active Substance: PANTOPRAZOLE SODIUM
     Indication: Product used for unknown indication

REACTIONS (3)
  - Haemorrhage [Recovered/Resolved]
  - Blood loss anaemia [Recovering/Resolving]
  - Drug interaction [Recovered/Resolved]

NARRATIVE: CASE EVENT DATE: 20240809
